FAERS Safety Report 4858102-1 (Version None)
Quarter: 2005Q4

REPORT INFORMATION
  Report Type: 
  Country: None (occurrence: None)
  Receive Date: 20051219
  Receipt Date: 20050511
  Transmission Date: 20060501
  Serious: No
  Sender: FDA-Public Use
  Company Number: US-GLAXOSMITHKLINE-A0558094A

PATIENT
  Age: 23 Year

DRUGS (1)
  1. NICODERM CQ [Suspect]
     Dates: start: 20050509

REACTIONS (7)
  - APPLICATION SITE ERYTHEMA [None]
  - COUGH [None]
  - FEELING COLD [None]
  - HEADACHE [None]
  - NASAL CONGESTION [None]
  - NAUSEA [None]
  - PYREXIA [None]
